FAERS Safety Report 8169240-2 (Version None)
Quarter: 2012Q1

REPORT INFORMATION
  Report Type: 
  Country: None (occurrence: None)
  Receive Date: 20120228
  Receipt Date: 20120221
  Transmission Date: 20120608
  Serious: Yes (Death)
  Sender: FDA-Public Use
  Company Number: DE-ASTRAZENECA-2012SE11780

PATIENT
  Age: 85 Year
  Sex: Male

DRUGS (20)
  1. FUROSEMIDE [Concomitant]
     Route: 048
     Dates: start: 20110718, end: 20110721
  2. FUROSEMIDE [Concomitant]
     Route: 048
     Dates: start: 20110722
  3. DIPIDOLOR [Concomitant]
     Dosage: 7.5 - 15 MG PER DAY
     Route: 048
     Dates: start: 20110721, end: 20110727
  4. DIPIDOLOR [Concomitant]
     Route: 048
     Dates: start: 20110804
  5. METOPROLOL [Concomitant]
     Route: 048
     Dates: end: 20110804
  6. OXAZEPAM [Concomitant]
     Route: 048
     Dates: start: 20110804, end: 20110805
  7. SEROQUEL [Suspect]
     Route: 048
     Dates: start: 20110722, end: 20110722
  8. SEROQUEL [Suspect]
     Route: 048
     Dates: start: 20110724, end: 20110803
  9. BERODUAL [Concomitant]
     Dates: start: 20110718
  10. SEROQUEL [Suspect]
     Route: 048
     Dates: start: 20110723, end: 20110723
  11. OXAZEPAM [Concomitant]
     Route: 048
     Dates: start: 20110725, end: 20110729
  12. SEROQUEL [Suspect]
     Route: 048
     Dates: start: 20110804, end: 20110804
  13. FUROSEMIDE [Concomitant]
     Route: 048
     Dates: start: 20110715, end: 20110717
  14. VOLTAREN [Concomitant]
     Route: 048
     Dates: start: 20110727
  15. OXAZEPAM [Concomitant]
     Route: 048
     Dates: start: 20110730, end: 20110803
  16. PANTOPRAZOLE [Concomitant]
     Route: 048
     Dates: start: 20110727
  17. EMBOLEX [Concomitant]
     Route: 058
     Dates: start: 20110717
  18. SEROQUEL [Suspect]
     Route: 048
     Dates: start: 20110805
  19. HALDOL [Suspect]
     Route: 048
     Dates: start: 20110730
  20. ASPIRIN [Concomitant]
     Route: 048

REACTIONS (1)
  - DEATH [None]
